FAERS Safety Report 18333494 (Version 3)
Quarter: 2021Q1

REPORT INFORMATION
  Report Type: Spontaneous
  Country: US (occurrence: US)
  Receive Date: 20201001
  Receipt Date: 20210210
  Transmission Date: 20210419
  Serious: Yes (Hospitalization, Other)
  Sender: FDA-Public Use
  Company Number: US-ASTRAZENECA-2020SF23407

PATIENT
  Age: 20324 Day
  Sex: Male
  Weight: 103.4 kg

DRUGS (43)
  1. METRONIDAZOLE. [Concomitant]
     Active Substance: METRONIDAZOLE
  2. FENTANYL. [Concomitant]
     Active Substance: FENTANYL
  3. HYDROCODONE BITARTRATE. [Concomitant]
     Active Substance: HYDROCODONE BITARTRATE
  4. HYDROCHLOROTHIAZIDE. [Concomitant]
     Active Substance: HYDROCHLOROTHIAZIDE
  5. VANCOMYCIN [Concomitant]
     Active Substance: VANCOMYCIN
  6. HYDROMORPHONE [Concomitant]
     Active Substance: HYDROMORPHONE
  7. POLYMYXIN [Concomitant]
     Active Substance: POLYMYXIN
  8. ZINC SULFATE. [Concomitant]
     Active Substance: ZINC SULFATE
  9. FARXIGA [Suspect]
     Active Substance: DAPAGLIFLOZIN PROPANEDIOL
     Indication: TYPE 2 DIABETES MELLITUS
     Route: 048
     Dates: start: 20150219
  10. FARXIGA [Suspect]
     Active Substance: DAPAGLIFLOZIN PROPANEDIOL
     Indication: BLOOD PRESSURE DECREASED
     Route: 048
     Dates: start: 20150219
  11. CLINDAMYCIN. [Concomitant]
     Active Substance: CLINDAMYCIN
  12. XYLOCAINE [Concomitant]
     Active Substance: LIDOCAINE HYDROCHLORIDE
  13. VITAMIN A [Concomitant]
     Active Substance: VITAMIN A
  14. ZINC. [Concomitant]
     Active Substance: ZINC
  15. FARXIGA [Suspect]
     Active Substance: DAPAGLIFLOZIN PROPANEDIOL
     Indication: BLOOD PRESSURE DECREASED
     Route: 048
     Dates: start: 201502, end: 201809
  16. LISINOPRIL. [Concomitant]
     Active Substance: LISINOPRIL
  17. FENOFIBRATE. [Concomitant]
     Active Substance: FENOFIBRATE
  18. METFORMIN [Concomitant]
     Active Substance: METFORMIN HYDROCHLORIDE
  19. PROPOFOL. [Concomitant]
     Active Substance: PROPOFOL
  20. POTASSIUM CHLORIDE. [Concomitant]
     Active Substance: POTASSIUM CHLORIDE
  21. LIDOCAINE. [Concomitant]
     Active Substance: LIDOCAINE
  22. FAMOTIDINE. [Concomitant]
     Active Substance: FAMOTIDINE
  23. FARXIGA [Suspect]
     Active Substance: DAPAGLIFLOZIN PROPANEDIOL
     Indication: TYPE 2 DIABETES MELLITUS
     Route: 048
     Dates: start: 201502, end: 201809
  24. ONDANSETRON [Concomitant]
     Active Substance: ONDANSETRON
  25. ZOFRAN [Concomitant]
     Active Substance: ONDANSETRON HYDROCHLORIDE
  26. INSULIN [Concomitant]
     Active Substance: INSULIN NOS
  27. AMLODIPINE [Concomitant]
     Active Substance: AMLODIPINE BESYLATE
  28. HYDRALAZINE [Concomitant]
     Active Substance: HYDRALAZINE HYDROCHLORIDE
  29. SODIUM CHLORIDE. [Concomitant]
     Active Substance: SODIUM CHLORIDE
  30. AMPICILLIN [Concomitant]
     Active Substance: AMPICILLIN
  31. METFORMIN HYDROCHLORIDE. [Concomitant]
     Active Substance: METFORMIN HYDROCHLORIDE
  32. FARXIGA [Suspect]
     Active Substance: DAPAGLIFLOZIN PROPANEDIOL
     Indication: WEIGHT DECREASED
     Route: 048
     Dates: start: 20150219
  33. ATORVASTATIN [Concomitant]
     Active Substance: ATORVASTATIN
  34. ERTAPENEM. [Concomitant]
     Active Substance: ERTAPENEM SODIUM
  35. FARXIGA [Suspect]
     Active Substance: DAPAGLIFLOZIN PROPANEDIOL
     Indication: WEIGHT DECREASED
     Route: 048
     Dates: start: 201502, end: 201809
  36. JANUMET [Concomitant]
     Active Substance: METFORMIN HYDROCHLORIDE\SITAGLIPTIN PHOSPHATE
  37. METOPROLOL. [Concomitant]
     Active Substance: METOPROLOL
  38. DOXYCYCLINE. [Concomitant]
     Active Substance: DOXYCYCLINE
  39. GENTAMICIN. [Concomitant]
     Active Substance: GENTAMICIN
  40. MEROPENEM. [Concomitant]
     Active Substance: MEROPENEM
  41. GLUCOSE [Concomitant]
     Active Substance: DEXTROSE
  42. VITAMIN C [Concomitant]
     Active Substance: ASCORBIC ACID
  43. ATORVASTATIN CALCIUM. [Concomitant]
     Active Substance: ATORVASTATIN CALCIUM

REACTIONS (14)
  - Fournier^s gangrene [Unknown]
  - Abscess [Unknown]
  - Scrotal abscess [Unknown]
  - Emotional distress [Unknown]
  - Scrotal infection [Unknown]
  - Necrotising fasciitis [Unknown]
  - Groin abscess [Unknown]
  - Sepsis [Unknown]
  - Perineal abscess [Unknown]
  - Headache [Unknown]
  - Cellulitis streptococcal [Unknown]
  - Dizziness [Unknown]
  - Vision blurred [Unknown]
  - Abdominal pain [Unknown]

NARRATIVE: CASE EVENT DATE: 20160802
